FAERS Safety Report 9841220 (Version 1)
Quarter: 2014Q1

REPORT INFORMATION
  Report Type: Spontaneous
  Country: US (occurrence: None)
  Receive Date: 20140123
  Receipt Date: 20140123
  Transmission Date: 20141002
  Serious: Yes (Hospitalization)
  Sender: FDA-Public Use
  Company Number: None

PATIENT
  Age: 87 Year
  Sex: Male
  Weight: 88 kg

DRUGS (9)
  1. RIVAROXABAN [Suspect]
     Indication: ATRIAL FIBRILLATION
  2. HYDRALAZINE [Concomitant]
  3. LASIX [Concomitant]
  4. CARVEDILOL [Concomitant]
  5. ASCORBIC ACID [Concomitant]
  6. NORVASC [Concomitant]
  7. ISOSORBIDE DINITRATE [Concomitant]
  8. MULTIVITAMIN ONCE DAILY [Concomitant]
  9. FISH OIL [Concomitant]

REACTIONS (1)
  - Gastrointestinal haemorrhage [None]
